FAERS Safety Report 7499634-X (Version None)
Quarter: 2011Q2

REPORT INFORMATION
  Report Type: 
  Country: None (occurrence: None)
  Receive Date: 20110524
  Receipt Date: 20110510
  Transmission Date: 20111010
  Serious: Yes (Hospitalization)
  Sender: FDA-Public Use
  Company Number: FR-PFIZER INC-2011110387

PATIENT
  Age: 61 Year
  Sex: Female

DRUGS (17)
  1. FLOLAN [Suspect]
     Dosage: 7.5 MG/KG/MIN
     Route: 042
  2. VERAPAMIL [Suspect]
     Dosage: 40 MG, 1X/DAY
     Route: 048
     Dates: start: 20110412
  3. LORAZEPAM [Suspect]
     Dosage: 4 MG, 1X/DAY
     Route: 048
  4. TRAMADOL HCL [Suspect]
     Dosage: 1 UNIT DAILY
     Route: 048
  5. VERAPAMIL [Suspect]
     Dosage: 40 MG, 3X/DAY
     Route: 048
     Dates: end: 20110411
  6. NEXIUM [Suspect]
     Dosage: 1 UNIT DAILY
     Route: 048
  7. LEVOTHYROXINE SODIUM [Suspect]
     Dosage: 50 UG, 1X/DAY
     Route: 048
  8. COUMADIN [Suspect]
     Dosage: DEPENDING ON INR
     Route: 048
     Dates: end: 20110410
  9. FLOLAN [Suspect]
     Dosage: 8 MG/KG/MIN
     Route: 042
     Dates: start: 20090916
  10. TERCIAN [Suspect]
     Dosage: 15 ORAL DROPS DAILY
     Route: 048
  11. LASIX [Suspect]
     Dosage: 2 UNITS DAILY
     Route: 048
  12. ATARAX [Suspect]
     Dosage: 1 UNIT DAILY
     Route: 048
  13. COUMADIN [Suspect]
     Dosage: DEPENDING ON INR
     Route: 048
     Dates: start: 20110414
  14. REVATIO [Suspect]
     Indication: PULMONARY HYPERTENSION
     Dosage: 3 UNITS DAILY
     Route: 048
  15. TRACLEER [Suspect]
     Dosage: 2 UNITS DAILY
     Route: 048
  16. MIANSERIN HYDROCHLORIDE [Suspect]
     Dosage: 1 UNIT DAILY
     Route: 048
  17. ZOLPIDEM [Suspect]
     Dosage: 2 TABLETS AT NIGHT
     Route: 048

REACTIONS (5)
  - THROMBOCYTOPENIA [None]
  - MELAENA [None]
  - RECTAL HAEMORRHAGE [None]
  - EPISTAXIS [None]
  - GASTROINTESTINAL HAEMORRHAGE [None]
